FAERS Safety Report 18938236 (Version 1)
Quarter: 2021Q1

REPORT INFORMATION
  Report Type: Spontaneous
  Country: US (occurrence: US)
  Receive Date: 20210224
  Receipt Date: 20210224
  Transmission Date: 20210420
  Serious: Yes (Disabling, Other)
  Sender: FDA-Public Use
  Company Number: None

PATIENT
  Age: 46 Year
  Sex: Female
  Weight: 94.5 kg

DRUGS (1)
  1. LUBRICANT EYE DROPS HIGH PERFORMANCE [Suspect]
     Active Substance: POLYETHYLENE GLYCOL 400\PROPYLENE GLYCOL
     Indication: DRY EYE
     Route: 047
     Dates: start: 20210215, end: 20210215

REACTIONS (4)
  - Product quality issue [None]
  - Herpes simplex reactivation [None]
  - Product label issue [None]
  - Ophthalmic herpes simplex [None]

NARRATIVE: CASE EVENT DATE: 20210216
